FAERS Safety Report 6915326-7 (Version None)
Quarter: 2010Q3

REPORT INFORMATION
  Report Type: 
  Country: None (occurrence: None)
  Receive Date: 20100806
  Receipt Date: 20100806
  Transmission Date: 20110219
  Serious: Yes (Life-Threatening)
  Sender: FDA-Public Use
  Company Number: None

PATIENT
  Age: 59 Year
  Sex: Female
  Weight: 78.0187 kg

DRUGS (1)
  1. SEROQUEL [Suspect]
     Dosage: 100MG NIGHTLY PO
     Route: 048
     Dates: start: 20100601, end: 20100719

REACTIONS (5)
  - CONDITION AGGRAVATED [None]
  - CRYING [None]
  - DEPRESSION [None]
  - GRIP STRENGTH DECREASED [None]
  - SUICIDAL IDEATION [None]
